FAERS Safety Report 10590344 (Version 1)
Quarter: 2014Q4

REPORT INFORMATION
  Report Type: Spontaneous
  Country: US (occurrence: US)
  Receive Date: 20141118
  Receipt Date: 20141118
  Transmission Date: 20150529
  Serious: Yes (Other)
  Sender: FDA-Public Use
  Company Number: US-MYLANLABS-2014M1010419

PATIENT

DRUGS (4)
  1. CARBOPLATIN. [Suspect]
     Active Substance: CARBOPLATIN
     Indication: OFF LABEL USE
  2. DOCETAXEL. [Suspect]
     Active Substance: DOCETAXEL
     Indication: BREAST CANCER
     Route: 065
  3. CARBOPLATIN. [Suspect]
     Active Substance: CARBOPLATIN
     Indication: BREAST CANCER
     Route: 065
  4. HERCEPTIN [Suspect]
     Active Substance: TRASTUZUMAB
     Indication: BREAST CANCER
     Route: 065

REACTIONS (2)
  - Feeling abnormal [Recovering/Resolving]
  - Cognitive disorder [Recovering/Resolving]
